FAERS Safety Report 19821981 (Version 1)
Quarter: 2021Q3

REPORT INFORMATION
  Report Type: Spontaneous
  Country: US (occurrence: US)
  Receive Date: 20210913
  Receipt Date: 20210913
  Transmission Date: 20211014
  Serious: Yes (Other)
  Sender: FDA-Public Use
  Company Number: None

PATIENT
  Age: 68 Year
  Sex: Female
  Weight: 97 kg

DRUGS (1)
  1. MYCOPHENOLATE MOFETIL. [Suspect]
     Active Substance: MYCOPHENOLATE MOFETIL
     Indication: LIVER TRANSPLANT
     Route: 048

REACTIONS (6)
  - Nausea [None]
  - Abdominal discomfort [None]
  - Pain [None]
  - Abdominal distension [None]
  - Constipation [None]
  - Decreased appetite [None]

NARRATIVE: CASE EVENT DATE: 20210601
